FAERS Safety Report 7871404-X (Version None)
Quarter: 2011Q4

REPORT INFORMATION
  Report Type: 
  Country: None (occurrence: None)
  Receive Date: 20111029
  Receipt Date: 20110302
  Transmission Date: 20120403
  Serious: Yes (Other)
  Sender: FDA-Public Use
  Company Number: US-AMGEN-USASP2011011799

PATIENT
  Age: 50 Year
  Sex: Female

DRUGS (2)
  1. ENBREL [Suspect]
     Indication: RHEUMATOID ARTHRITIS
     Dosage: 50 MG, QWK
     Dates: start: 20030601
  2. METHOTREXATE [Concomitant]
     Dates: start: 20000101

REACTIONS (5)
  - ATROPHY [None]
  - HEPATIC ENZYME INCREASED [None]
  - RHEUMATOID NODULE [None]
  - SYNOVIAL CYST [None]
  - RHEUMATOID ARTHRITIS [None]
